FAERS Safety Report 7672686-X (Version None)
Quarter: 2011Q3

REPORT INFORMATION
  Report Type: 
  Country: None (occurrence: None)
  Receive Date: 20110809
  Receipt Date: 20110801
  Transmission Date: 20111222
  Serious: Yes (Death)
  Sender: FDA-Public Use
  Company Number: PHHY2011BR70987

PATIENT
  Sex: Female

DRUGS (1)
  1. CAPTOPRIL [Suspect]
     Route: 048

REACTIONS (1)
  - DEATH [None]
